FAERS Safety Report 7892708-0 (Version None)
Quarter: 2011Q4

REPORT INFORMATION
  Report Type: 
  Country: None (occurrence: None)
  Receive Date: 20111104
  Receipt Date: 20111028
  Transmission Date: 20120403
  Serious: Yes (Other)
  Sender: FDA-Public Use
  Company Number: BR-BAYER-2011-106597

PATIENT
  Age: 16 Year
  Sex: Female

DRUGS (2)
  1. YAZ [Suspect]
     Indication: POLYCYSTIC OVARIES
     Dosage: UNK
     Route: 048
     Dates: start: 20100101, end: 20100901
  2. YAZ [Suspect]
     Dosage: UNK
     Dates: start: 20110201

REACTIONS (2)
  - OVARIAN CYST [None]
  - POLYCYSTIC OVARIES [None]
